FAERS Safety Report 13671307 (Version 1)
Quarter: 2017Q2

REPORT INFORMATION
  Report Type: Spontaneous
  Country: US (occurrence: US)
  Receive Date: 20170620
  Receipt Date: 20170620
  Transmission Date: 20170830
  Serious: No
  Sender: FDA-Public Use
  Company Number: US-ROCHE-780471

PATIENT
  Age: 80 Year
  Sex: Male

DRUGS (2)
  1. XELODA [Suspect]
     Active Substance: CAPECITABINE
     Indication: COLON CANCER
     Route: 065
  2. XELODA [Suspect]
     Active Substance: CAPECITABINE
     Dosage: DOSE ADJUSTED
     Route: 065

REACTIONS (3)
  - Onychoclasis [Not Recovered/Not Resolved]
  - Nail discolouration [Not Recovered/Not Resolved]
  - Palmar-plantar erythrodysaesthesia syndrome [Recovered/Resolved]
